FAERS Safety Report 19999125 (Version 2)
Quarter: 2021Q4

REPORT INFORMATION
  Report Type: Spontaneous
  Country: US (occurrence: US)
  Receive Date: 20211026
  Receipt Date: 20211129
  Transmission Date: 20220303
  Serious: Yes (Other)
  Sender: FDA-Public Use
  Company Number: US-PFIZER INC-202101375550

PATIENT
  Age: 79 Year
  Sex: Male
  Weight: 95.7 kg

DRUGS (3)
  1. BUPIVACAINE HYDROCHLORIDE [Suspect]
     Active Substance: BUPIVACAINE HYDROCHLORIDE
     Indication: Spinal anaesthesia
     Dosage: 15MG/2ML INTRATHECALLY AT 09:58
     Route: 037
     Dates: start: 20211014
  2. BUPIVACAINE HYDROCHLORIDE [Suspect]
     Active Substance: BUPIVACAINE HYDROCHLORIDE
     Indication: Knee arthroplasty
     Dosage: 15MG/2ML INTRATHECALLY AT 10:23
     Route: 037
     Dates: start: 20211014
  3. BUPIVACAINE HYDROCHLORIDE [Suspect]
     Active Substance: BUPIVACAINE HYDROCHLORIDE
     Dosage: 7.5 MG/ML, 1X/DAY
     Route: 037
     Dates: start: 20211014

REACTIONS (1)
  - Drug ineffective [Recovered/Resolved]

NARRATIVE: CASE EVENT DATE: 20211014
